FAERS Safety Report 6222210-3 (Version None)
Quarter: 2009Q2

REPORT INFORMATION
  Report Type: 
  Country: None (occurrence: None)
  Receive Date: 20090611
  Receipt Date: 20090601
  Transmission Date: 20091009
  Serious: Yes (Other)
  Sender: FDA-Public Use
  Company Number: PHHY2009ZA20022

PATIENT
  Sex: Female

DRUGS (5)
  1. VOLTAREN [Suspect]
     Indication: MIGRAINE
     Dosage: 1 DF, TID
     Route: 048
     Dates: start: 20090517, end: 20090518
  2. VOLTAREN [Suspect]
     Indication: HEADACHE
  3. DICLOFENAC SODIUM [Suspect]
     Route: 030
  4. FLUOXETINE HCL [Concomitant]
     Indication: EATING DISORDER
     Dosage: 60 MG/DAY
     Route: 048
  5. FLUOXETINE HCL [Concomitant]
     Dosage: 20 MG/DAY
     Route: 048
     Dates: start: 20081001

REACTIONS (5)
  - ANAEMIA [None]
  - DIARRHOEA [None]
  - GASTROENTERITIS VIRAL [None]
  - MALAISE [None]
  - SYNCOPE [None]
